FAERS Safety Report 7237560-1 (Version None)
Quarter: 2011Q1

REPORT INFORMATION
  Report Type: 
  Country: None (occurrence: None)
  Receive Date: 20110121
  Receipt Date: 20110110
  Transmission Date: 20110831
  Serious: Yes (Other)
  Sender: FDA-Public Use
  Company Number: US-CELGENEUS-163-21880-10070947

PATIENT
  Sex: Female

DRUGS (16)
  1. CARBAMAZEPINE [Concomitant]
     Route: 048
     Dates: start: 20100809
  2. HYDROMORPHONE HYDROCHLORIDE [Concomitant]
     Dosage: 0.5-1 TABLET
     Route: 048
     Dates: start: 20101011
  3. IPRATROPIUM BROMIDE [Concomitant]
     Dosage: 2 SPRAYS
     Route: 045
     Dates: start: 20100927
  4. REVLIMID [Suspect]
     Route: 048
     Dates: start: 20100701
  5. CHOLECALCIFEROL [Concomitant]
     Route: 048
     Dates: start: 20100608
  6. ERGOCALCIFEROL [Concomitant]
     Route: 048
     Dates: start: 20100614
  7. BUDESONIDE/FORMOTEROL [Concomitant]
     Dosage: 160/4.5MCG/2 SPRAYS
     Route: 055
     Dates: start: 20100927
  8. REVLIMID [Suspect]
     Route: 048
     Dates: start: 20101201
  9. FLUTICASONE PROPIONATE [Concomitant]
     Dosage: 2 SPRAYS
     Route: 045
     Dates: start: 20100927
  10. REVLIMID [Suspect]
     Indication: MULTIPLE MYELOMA
     Route: 048
     Dates: start: 20100624
  11. ACYCLOVIR [Concomitant]
     Indication: ANTIVIRAL PROPHYLAXIS
     Route: 048
     Dates: start: 20100610
  12. ALBUTEROL [Concomitant]
     Indication: ASTHMA
     Dosage: 1-2 PUFFS
     Route: 055
     Dates: start: 20100927
  13. DEXAMETHASONE [Concomitant]
     Route: 048
     Dates: start: 20100610
  14. LIDOCAINE HYDROCHLORIDE IN PLASTIC CONTAINER [Concomitant]
     Indication: PAIN
     Dosage: 1 PATCH
     Route: 061
     Dates: start: 20100927
  15. BECLOMETHASONE DIPROPIONATE [Concomitant]
     Indication: ASTHMA
     Dosage: 2 PUFFS
     Route: 055
     Dates: start: 20100927
  16. OMEPRAZOLE [Concomitant]
     Route: 048
     Dates: start: 20100726

REACTIONS (1)
  - BLOOD HUMAN CHORIONIC GONADOTROPIN INCREASED [None]
